FAERS Safety Report 13562908 (Version 2)
Quarter: 2019Q1

REPORT INFORMATION
  Report Type: Spontaneous
  Country: US (occurrence: US)
  Receive Date: 20170519
  Receipt Date: 20190228
  Transmission Date: 20190417
  Serious: No
  Sender: FDA-Public Use
  Company Number: US-JNJFOC-20170502129

PATIENT
  Age: 57 Year
  Sex: Male

DRUGS (2)
  1. VISINE A [Suspect]
     Active Substance: NAPHAZOLINE HYDROCHLORIDE\PHENIRAMINE MALEATE
     Indication: MULTIPLE ALLERGIES
     Dosage: OVER THE COURSE OF WEEKEND
     Route: 047
     Dates: start: 201704, end: 201704
  2. VISINE A [Suspect]
     Active Substance: NAPHAZOLINE HYDROCHLORIDE\PHENIRAMINE MALEATE
     Indication: DRY EYE
     Dosage: OVER THE COURSE OF WEEKEND
     Route: 047
     Dates: start: 201704, end: 201704

REACTIONS (2)
  - Eye irritation [Recovered/Resolved]
  - Product use in unapproved indication [Recovered/Resolved]

NARRATIVE: CASE EVENT DATE: 201704
